FAERS Safety Report 9061942 (Version 1)
Quarter: 2013Q1

REPORT INFORMATION
  Report Type: Spontaneous
  Country: US (occurrence: US)
  Receive Date: 20130129
  Receipt Date: 20130129
  Transmission Date: 20140127
  Serious: No
  Sender: FDA-Public Use
  Company Number: US-ASTRAZENECA-2013SE03595

PATIENT
  Age: 46 Year
  Sex: Male
  Weight: 111.1 kg

DRUGS (2)
  1. NEXIUM [Suspect]
     Indication: BARRETT^S OESOPHAGUS
     Route: 048
     Dates: start: 2007, end: 2012
  2. COMBIVENT INHALER [Concomitant]
     Indication: ASTHMA

REACTIONS (4)
  - Gastrointestinal tract mucosal discolouration [Unknown]
  - Off label use [Recovered/Resolved]
  - Off label use [Recovered/Resolved]
  - Intentional drug misuse [Unknown]
